FAERS Safety Report 9279119 (Version 1)
Quarter: 2012Q4

REPORT INFORMATION
  Report Type: Spontaneous
  Country: US (occurrence: None)
  Receive Date: 20120925
  Receipt Date: 20120925
  Transmission Date: 20130627
  Serious: Yes (Hospitalization, Other)
  Sender: FDA-Public Use
  Company Number: VAL_00842_2012

PATIENT
  Sex: Female

DRUGS (9)
  1. METOPROLOL [Suspect]
     Indication: PRODUCT USED FOR UNKNOWN INDICATION
     Dosage: (DF)
  2. DIOVAN [Concomitant]
  3. SPIRONOLACTONE [Concomitant]
  4. LASIX /00032601/ [Concomitant]
  5. LIPITOR [Concomitant]
  6. PRILOSEC /00661201/ [Concomitant]
  7. IMDUR [Concomitant]
  8. POTASSIUM [Concomitant]
  9. LOPRESSOR [Concomitant]

REACTIONS (3)
  - Atrial fibrillation [None]
  - Wrong technique in drug usage process [None]
  - Product quality issue [None]
